FAERS Safety Report 19666404 (Version 3)
Quarter: 2022Q2

REPORT INFORMATION
  Report Type: Report from Study
  Country: US (occurrence: US)
  Receive Date: 20210806
  Receipt Date: 20220408
  Transmission Date: 20220720
  Serious: No
  Sender: FDA-Public Use
  Company Number: NVSC2021US175157

PATIENT
  Sex: Male

DRUGS (1)
  1. ENTRESTO [Suspect]
     Active Substance: SACUBITRIL\VALSARTAN
     Indication: Cardiac failure chronic
     Dosage: UNK, UNKNOWN
     Route: 065
     Dates: start: 202106

REACTIONS (5)
  - Protein urine [Unknown]
  - Blood glucose abnormal [Unknown]
  - Product use issue [Unknown]
  - Dizziness [Unknown]
  - Dizziness postural [Unknown]
